FAERS Safety Report 11807307 (Version 1)
Quarter: 2015Q4

REPORT INFORMATION
  Report Type: Spontaneous
  Country: IT (occurrence: IT)
  Receive Date: 20151207
  Receipt Date: 20151207
  Transmission Date: 20160305
  Serious: Yes (Hospitalization)
  Sender: FDA-Public Use
  Company Number: IT-TEVA-616069ISR

PATIENT
  Age: 59 Month

DRUGS (4)
  1. INSULIN [Suspect]
     Active Substance: INSULIN NOS
  2. FUROSEMIDE. [Suspect]
     Active Substance: FUROSEMIDE
  3. PROGESTERONE. [Suspect]
     Active Substance: PROGESTERONE
  4. GLIBENCLAMIDE [Suspect]
     Active Substance: GLYBURIDE

REACTIONS (6)
  - Developmental delay [Unknown]
  - Hypoglycaemia [Unknown]
  - Hirsutism [Unknown]
  - Nephrocalcinosis [Unknown]
  - Hyperglycaemia [Unknown]
  - Hypokalaemia [Unknown]
